FAERS Safety Report 14576622 (Version 26)
Quarter: 2024Q2

REPORT INFORMATION
  Report Type: Spontaneous
  Country: GB (occurrence: GB)
  Receive Date: 20180227
  Receipt Date: 20240612
  Transmission Date: 20240716
  Serious: Yes (Hospitalization, Disabling, Other)
  Sender: FDA-Public Use
  Company Number: None

PATIENT
  Age: 83 Year
  Sex: Female
  Weight: 91 kg

DRUGS (268)
  1. ISOSORBIDE MONONITRATE [Suspect]
     Active Substance: ISOSORBIDE MONONITRATE
     Indication: Product used for unknown indication
     Dosage: 50 MG, QD MORNING?FORM OF ADMIN.:- MODIFIED-RELEASE CAPSULE, HARD
     Route: 048
  2. ISOSORBIDE MONONITRATE [Suspect]
     Active Substance: ISOSORBIDE MONONITRATE
     Dosage: 50 MG, QD (MORNING) ?FORM OF ADMIN.:- MODIFIED-RELEASE CAPSULE, HARD
  3. LINAGLIPTIN [Suspect]
     Active Substance: LINAGLIPTIN
     Indication: Product used for unknown indication
     Dosage: 5 MG EVERY MORNING
  4. LINAGLIPTIN [Suspect]
     Active Substance: LINAGLIPTIN
     Dosage: 5 MG EVERY MORNING
  5. LINAGLIPTIN [Suspect]
     Active Substance: LINAGLIPTIN
     Dosage: 5 UG DAILY
  6. LINAGLIPTIN [Suspect]
     Active Substance: LINAGLIPTIN
     Dosage: 5 UG DAILY
  7. LINAGLIPTIN [Suspect]
     Active Substance: LINAGLIPTIN
     Dosage: 5 UG DAILY
  8. LINAGLIPTIN [Suspect]
     Active Substance: LINAGLIPTIN
  9. LINAGLIPTIN [Suspect]
     Active Substance: LINAGLIPTIN
     Indication: Product used for unknown indication
     Dosage: 5 MILLIGRAM, QD
  10. LINAGLIPTIN [Suspect]
     Active Substance: LINAGLIPTIN
     Dosage: 5 MG, ONCE DAILY (QD) (MORNING)
  11. LINAGLIPTIN [Suspect]
     Active Substance: LINAGLIPTIN
     Dosage: 5 MILLIGRAM, QD
  12. LINAGLIPTIN [Suspect]
     Active Substance: LINAGLIPTIN
     Dosage: 5 MILLIGRAM, QD
  13. CANDESARTAN CILEXETIL [Suspect]
     Active Substance: CANDESARTAN CILEXETIL
     Indication: Cerebrovascular accident prophylaxis
     Dosage: 2 MG DAILY
     Route: 048
  14. CANDESARTAN CILEXETIL [Suspect]
     Active Substance: CANDESARTAN CILEXETIL
     Indication: Product used for unknown indication
     Dosage: 2 MG DAILY
     Route: 048
  15. CANDESARTAN CILEXETIL [Suspect]
     Active Substance: CANDESARTAN CILEXETIL
     Dosage: 10 MG DAILY
     Route: 048
  16. CANDESARTAN CILEXETIL [Suspect]
     Active Substance: CANDESARTAN CILEXETIL
     Dosage: ONE TO BE TAKEN EACH DAY
     Route: 048
     Dates: start: 20230222
  17. CANDESARTAN CILEXETIL [Suspect]
     Active Substance: CANDESARTAN CILEXETIL
     Dosage: 2 MG DAILY
     Route: 048
  18. CANDESARTAN CILEXETIL [Suspect]
     Active Substance: CANDESARTAN CILEXETIL
     Dosage: 2 MG DAILY
     Route: 048
  19. CANDESARTAN CILEXETIL [Suspect]
     Active Substance: CANDESARTAN CILEXETIL
     Route: 048
     Dates: start: 20220401, end: 20230316
  20. CANDESARTAN CILEXETIL [Suspect]
     Active Substance: CANDESARTAN CILEXETIL
     Dosage: 2 MG DAILY
     Route: 048
  21. CANDESARTAN CILEXETIL [Suspect]
     Active Substance: CANDESARTAN CILEXETIL
     Dosage: 2 MG, ONCE DAILY (QD) MORNING; OFF LABEL USE
     Route: 048
  22. CANDESARTAN CILEXETIL [Suspect]
     Active Substance: CANDESARTAN CILEXETIL
     Dosage: 2 MG DAILY
     Route: 048
  23. CANDESARTAN CILEXETIL [Suspect]
     Active Substance: CANDESARTAN CILEXETIL
     Dosage: IN THE MORNING
  24. CANDESARTAN CILEXETIL [Suspect]
     Active Substance: CANDESARTAN CILEXETIL
     Dosage: 2 MG, QD MORNING
     Route: 065
  25. CANDESARTAN CILEXETIL [Suspect]
     Active Substance: CANDESARTAN CILEXETIL
     Dosage: 2 MG, ONCE DAILY (QD) MORNING; OFF LABEL USE
     Route: 048
  26. IMDUR [Suspect]
     Active Substance: ISOSORBIDE MONONITRATE
     Indication: Product used for unknown indication
     Dosage: 50 MG EVERY MORNING?FORM OF ADMIN.:- DURULE
     Route: 048
  27. IMDUR [Suspect]
     Active Substance: ISOSORBIDE MONONITRATE
     Indication: Product used for unknown indication
     Route: 048
  28. IMDUR [Suspect]
     Active Substance: ISOSORBIDE MONONITRATE
     Route: 048
  29. IMDUR [Suspect]
     Active Substance: ISOSORBIDE MONONITRATE
     Dosage: 50 MG EVERY MORNING
     Route: 048
  30. IMDUR [Suspect]
     Active Substance: ISOSORBIDE MONONITRATE
     Dosage: 50 MILLIGRAM, QD (IN MORNING)
     Route: 048
  31. IMDUR [Suspect]
     Active Substance: ISOSORBIDE MONONITRATE
     Dosage: 50 MG EVERY MORNING
     Route: 048
  32. IMDUR [Suspect]
     Active Substance: ISOSORBIDE MONONITRATE
     Dosage: UNK
     Route: 048
  33. IMDUR [Suspect]
     Active Substance: ISOSORBIDE MONONITRATE
     Dosage: 50 MILLIGRAM, ONCE A DAY
     Route: 048
  34. IMDUR [Suspect]
     Active Substance: ISOSORBIDE MONONITRATE
     Dosage: 50 MILLIGRAM, QD
     Route: 048
  35. IMDUR [Suspect]
     Active Substance: ISOSORBIDE MONONITRATE
     Dosage: 50 MILLIGRAM, QD
     Route: 048
  36. IMDUR [Suspect]
     Active Substance: ISOSORBIDE MONONITRATE
     Dosage: 50 MILLIGRAM, QD
     Route: 048
  37. IMDUR [Suspect]
     Active Substance: ISOSORBIDE MONONITRATE
     Dosage: 50 MILLIGRAM, QD
     Route: 048
  38. IMDUR [Suspect]
     Active Substance: ISOSORBIDE MONONITRATE
     Dosage: 50 MILLIGRAM, QD
     Route: 048
  39. IMDUR [Suspect]
     Active Substance: ISOSORBIDE MONONITRATE
     Dosage: 50 MILLIGRAM, ONCE A DAY
     Route: 048
  40. IMDUR [Suspect]
     Active Substance: ISOSORBIDE MONONITRATE
     Dosage: UNK
     Route: 048
  41. IMDUR [Suspect]
     Active Substance: ISOSORBIDE MONONITRATE
     Dosage: 50 MILLIGRAM, QD
     Route: 048
  42. IMDUR [Suspect]
     Active Substance: ISOSORBIDE MONONITRATE
     Dosage: UNK
     Route: 048
  43. IMDUR [Suspect]
     Active Substance: ISOSORBIDE MONONITRATE
     Dosage: 50 MILLIGRAM, ONCE A DAY
     Route: 048
  44. IMDUR [Suspect]
     Active Substance: ISOSORBIDE MONONITRATE
     Dosage: 50 MILLIGRAM, QD
     Route: 048
  45. IMDUR [Suspect]
     Active Substance: ISOSORBIDE MONONITRATE
     Dosage: 50 MILLIGRAM, QD
     Route: 048
  46. IMDUR [Suspect]
     Active Substance: ISOSORBIDE MONONITRATE
     Dosage: 50 MILLIGRAM, QD
     Route: 048
  47. IMDUR [Suspect]
     Active Substance: ISOSORBIDE MONONITRATE
     Dosage: 50 MILLIGRAM, QD
     Route: 048
  48. IMDUR [Suspect]
     Active Substance: ISOSORBIDE MONONITRATE
     Dosage: 50 MILLIGRAM, QD
     Route: 048
  49. IMDUR [Suspect]
     Active Substance: ISOSORBIDE MONONITRATE
     Dosage: 50 MILLIGRAM, ONCE A DAY
     Route: 048
  50. IMDUR [Suspect]
     Active Substance: ISOSORBIDE MONONITRATE
     Dosage: UNK
     Route: 048
  51. IMDUR [Suspect]
     Active Substance: ISOSORBIDE MONONITRATE
     Dosage: 50 MILLIGRAM, QD
     Route: 048
  52. IMDUR [Suspect]
     Active Substance: ISOSORBIDE MONONITRATE
     Dosage: 50 MILLIGRAM, QD (IN MORNING)?FORM OF ADMIN.:- MODIFIED-RELEASE CAPSULE, HARD
     Route: 048
  53. IMDUR [Suspect]
     Active Substance: ISOSORBIDE MONONITRATE
     Dosage: (MORNING)?FORM OF ADMIN.:- MODIFIED-RELEASE CAPSULE, HARD
     Route: 048
  54. FELODIPINE [Suspect]
     Active Substance: FELODIPINE
     Indication: Blood pressure measurement
  55. FELODIPINE [Suspect]
     Active Substance: FELODIPINE
     Dates: start: 20230106
  56. DAPAGLIFLOZIN [Suspect]
     Active Substance: DAPAGLIFLOZIN
     Indication: Ill-defined disorder
     Route: 048
     Dates: start: 20230217
  57. DAPAGLIFLOZIN [Suspect]
     Active Substance: DAPAGLIFLOZIN
     Route: 048
     Dates: start: 20220725
  58. ESOMEPRAZOLE [Suspect]
     Active Substance: ESOMEPRAZOLE
     Indication: Reflux laryngitis
     Dosage: AFTER EVERY MEAL
  59. ASTRAZENECA COVID-19 VACCINE [Suspect]
     Active Substance: AZD-1222
     Indication: Product used for unknown indication
     Dosage: DOSE 2
     Dates: start: 20210208, end: 20210208
  60. ASTRAZENECA COVID-19 VACCINE [Suspect]
     Active Substance: AZD-1222
     Dosage: DOSE 2
     Dates: start: 20210312, end: 20210312
  61. ASTRAZENECA COVID-19 VACCINE [Suspect]
     Active Substance: AZD-1222
     Dosage: DOSE 2
     Dates: start: 20210312
  62. ASTRAZENECA COVID-19 VACCINE [Suspect]
     Active Substance: AZD-1222
     Dosage: DOSE 2
     Dates: start: 20210507
  63. ASTRAZENECA COVID-19 VACCINE [Suspect]
     Active Substance: AZD-1222
     Dosage: DOSE 2
     Dates: start: 20210517
  64. ASTRAZENECA COVID-19 VACCINE [Suspect]
     Active Substance: AZD-1222
     Dosage: DOSE 2
     Dates: start: 20210605
  65. ASTRAZENECA COVID-19 VACCINE [Suspect]
     Active Substance: AZD-1222
     Dosage: DOSE 2
     Dates: start: 20210622, end: 20210622
  66. ASTRAZENECA COVID-19 VACCINE [Suspect]
     Active Substance: AZD-1222
     Dosage: DOSE 2
     Dates: start: 20210625
  67. ASTRAZENECA COVID-19 VACCINE [Suspect]
     Active Substance: AZD-1222
     Dosage: DOSE 2
     Dates: start: 20210703
  68. ASTRAZENECA COVID-19 VACCINE [Suspect]
     Active Substance: AZD-1222
     Dosage: DOSE 2
     Dates: start: 20211021
  69. ASTRAZENECA COVID-19 VACCINE [Suspect]
     Active Substance: AZD-1222
     Dosage: DOSE 2
     Dates: start: 20211221, end: 20211221
  70. ASTRAZENECA COVID-19 VACCINE [Suspect]
     Active Substance: AZD-1222
     Dosage: DOSE 2
     Dates: start: 20221214
  71. DIGOXIN [Suspect]
     Active Substance: DIGOXIN
     Indication: Cerebrovascular accident prophylaxis
     Dosage: 4 UG DAILY
  72. DIGOXIN [Suspect]
     Active Substance: DIGOXIN
     Dosage: 62.5 UG EVERY MORNING
  73. DIGOXIN [Suspect]
     Active Substance: DIGOXIN
     Dosage: 62.5 UG, QD/ 62.5 MICROGRAM, ONCE DAILY (QD)  (MORNING)
  74. DIGOXIN [Suspect]
     Active Substance: DIGOXIN
     Dosage: 50 UG DAILY
  75. DIGOXIN [Suspect]
     Active Substance: DIGOXIN
     Dosage: 63
  76. DIGOXIN [Suspect]
     Active Substance: DIGOXIN
     Dosage: 62.5 UG DAILY
  77. DIGOXIN [Suspect]
     Active Substance: DIGOXIN
     Dosage: 62 UG DAILY
  78. DIGOXIN [Suspect]
     Active Substance: DIGOXIN
     Dosage: 1 UG DAILY
  79. LANSOPRAZOLE [Suspect]
     Active Substance: LANSOPRAZOLE
     Indication: Atrial fibrillation
     Dosage: 30 MG EVERY MORNING
     Route: 048
  80. LANSOPRAZOLE [Suspect]
     Active Substance: LANSOPRAZOLE
     Indication: Product used for unknown indication
     Dosage: 5 MG DAILY
     Dates: start: 20180207, end: 20180207
  81. LANSOPRAZOLE [Suspect]
     Active Substance: LANSOPRAZOLE
     Indication: Product used for unknown indication
     Dosage: 10 MG DAILY
     Dates: end: 20180218
  82. LANSOPRAZOLE [Suspect]
     Active Substance: LANSOPRAZOLE
     Dosage: 10 MG DAILY
     Dates: start: 20180207, end: 20180207
  83. LANSOPRAZOLE [Suspect]
     Active Substance: LANSOPRAZOLE
     Dosage: 30 MG DAILY, MORNING
  84. LANSOPRAZOLE [Suspect]
     Active Substance: LANSOPRAZOLE
     Dosage: 5 MG DAILY
     Dates: end: 20180218
  85. LANSOPRAZOLE [Suspect]
     Active Substance: LANSOPRAZOLE
     Dosage: 10 MG DAILY
     Dates: start: 20180207, end: 20180218
  86. LANSOPRAZOLE [Suspect]
     Active Substance: LANSOPRAZOLE
     Dosage: UNK UNK, QD;
     Dates: end: 20180218
  87. LANSOPRAZOLE [Suspect]
     Active Substance: LANSOPRAZOLE
     Dosage: 125 MICROGRAM, QD (MORNING)
  88. LANSOPRAZOLE [Suspect]
     Active Substance: LANSOPRAZOLE
     Dosage: 50 MG QD
     Dates: start: 20180207, end: 20180207
  89. LANSOPRAZOLE [Suspect]
     Active Substance: LANSOPRAZOLE
     Dosage: 10 MG QD
     Dates: start: 20180207, end: 20180207
  90. LANSOPRAZOLE [Suspect]
     Active Substance: LANSOPRAZOLE
     Dosage: 50 MICROGRAM, ONCE A DAY (MORNING)
  91. LANSOPRAZOLE [Suspect]
     Active Substance: LANSOPRAZOLE
     Dosage: 50 MICROGRAM, ONCE A DAY (MORNING)
  92. LANSOPRAZOLE [Suspect]
     Active Substance: LANSOPRAZOLE
     Dosage: 125 MICROGRAM, QD (MORNING)
  93. LANSOPRAZOLE [Suspect]
     Active Substance: LANSOPRAZOLE
     Dosage: 50 MG QD
     Dates: start: 20180207, end: 20180207
  94. LANSOPRAZOLE [Suspect]
     Active Substance: LANSOPRAZOLE
     Dosage: 10 MG QD
     Dates: start: 20180207, end: 20180207
  95. LANSOPRAZOLE [Suspect]
     Active Substance: LANSOPRAZOLE
     Dosage: UNK UNK, QD;
     Dates: end: 20180218
  96. LANSOPRAZOLE [Suspect]
     Active Substance: LANSOPRAZOLE
     Dosage: 125 MICROGRAM, QD (MORNING)
  97. LANSOPRAZOLE [Suspect]
     Active Substance: LANSOPRAZOLE
     Dosage: 50 MICROGRAM, ONCE A DAY (MORNING)
  98. LANSOPRAZOLE [Suspect]
     Active Substance: LANSOPRAZOLE
     Dosage: UNK UNK, QD;
     Dates: end: 20180218
  99. LANSOPRAZOLE [Suspect]
     Active Substance: LANSOPRAZOLE
     Dosage: 10 MG QD
     Dates: start: 20180207, end: 20180207
  100. LANSOPRAZOLE [Suspect]
     Active Substance: LANSOPRAZOLE
     Dosage: 50 MG QD
     Dates: start: 20180207, end: 20180207
  101. LANSOPRAZOLE [Suspect]
     Active Substance: LANSOPRAZOLE
     Dosage: 50 MG QD
     Dates: start: 20180207, end: 20180207
  102. LANSOPRAZOLE [Suspect]
     Active Substance: LANSOPRAZOLE
     Dosage: 125 MICROGRAM, QD (MORNING)
  103. LANSOPRAZOLE [Suspect]
     Active Substance: LANSOPRAZOLE
     Dosage: 50 MICROGRAM, ONCE A DAY (MORNING)
  104. LANSOPRAZOLE [Suspect]
     Active Substance: LANSOPRAZOLE
     Dosage: UNK UNK, QD;
     Dates: end: 20180218
  105. LANSOPRAZOLE [Suspect]
     Active Substance: LANSOPRAZOLE
     Dosage: 10 MG QD
     Dates: start: 20180207, end: 20180207
  106. LANSOPRAZOLE [Suspect]
     Active Substance: LANSOPRAZOLE
     Dosage: 10 MILLIGRAM, QD, (10 MG (1 DAY)
  107. SIMVASTATIN [Suspect]
     Active Substance: SIMVASTATIN
     Indication: Product used for unknown indication
     Dosage: 40 MILLIGRAM, OD, NIGHT
  108. SIMVASTATIN [Suspect]
     Active Substance: SIMVASTATIN
     Dosage: 40 MILLIGRAM, HS
  109. SIMVASTATIN [Suspect]
     Active Substance: SIMVASTATIN
     Dosage: 40 MG DAILY
  110. SIMVASTATIN [Suspect]
     Active Substance: SIMVASTATIN
     Dosage: 40 MG DAILY
  111. SIMVASTATIN [Suspect]
     Active Substance: SIMVASTATIN
     Dosage: 40 MG DAILY
  112. SIMVASTATIN [Suspect]
     Active Substance: SIMVASTATIN
  113. SIMVASTATIN [Suspect]
     Active Substance: SIMVASTATIN
  114. SIMVASTATIN [Suspect]
     Active Substance: SIMVASTATIN
     Dosage: 40 MG AT NIGHT
  115. SIMVASTATIN [Suspect]
     Active Substance: SIMVASTATIN
     Dosage: 40 MG AT NIGHT
  116. SIMVASTATIN [Suspect]
     Active Substance: SIMVASTATIN
     Dosage: 40 MG AT NIGHT
  117. SIMVASTATIN [Suspect]
     Active Substance: SIMVASTATIN
     Dosage: 40 MG AT NIGHT
  118. SIMVASTATIN [Suspect]
     Active Substance: SIMVASTATIN
     Dosage: UNK; ;
  119. SIMVASTATIN [Suspect]
     Active Substance: SIMVASTATIN
     Dosage: UNK; ;
  120. SIMVASTATIN [Suspect]
     Active Substance: SIMVASTATIN
     Dosage: UNK; ;
  121. SIMVASTATIN [Suspect]
     Active Substance: SIMVASTATIN
     Dosage: UNK; ;
  122. SIMVASTATIN [Suspect]
     Active Substance: SIMVASTATIN
     Dosage: 40 PER DAY, NIGHT
  123. SIMVASTATIN [Suspect]
     Active Substance: SIMVASTATIN
     Dosage: NIGHT
     Route: 065
  124. SIMVASTATIN [Suspect]
     Active Substance: SIMVASTATIN
     Dosage: 40 MG, QD (NIGHT)
  125. BISOPROLOL FUMARATE [Suspect]
     Active Substance: BISOPROLOL FUMARATE
     Indication: Product used for unknown indication
     Dosage: 10 MG DAILY
  126. BISOPROLOL FUMARATE [Suspect]
     Active Substance: BISOPROLOL FUMARATE
     Indication: Cerebrovascular accident prophylaxis
     Dosage: 10 MG (1 DAY)10 MG, QD; OFF LABEL USE
     Dates: start: 20180207, end: 20180207
  127. BISOPROLOL FUMARATE [Suspect]
     Active Substance: BISOPROLOL FUMARATE
     Indication: Product used for unknown indication
     Dosage: 10 MG DAILY
     Route: 048
  128. BISOPROLOL FUMARATE [Suspect]
     Active Substance: BISOPROLOL FUMARATE
     Dosage: 5 MG DAILY
     Route: 048
     Dates: start: 20180207, end: 20180207
  129. BISOPROLOL FUMARATE [Suspect]
     Active Substance: BISOPROLOL FUMARATE
     Dosage: 5 MG DAILY
     Dates: start: 20180207
  130. BISOPROLOL FUMARATE [Suspect]
     Active Substance: BISOPROLOL FUMARATE
     Dosage: 5 MG DAILY
     Dates: start: 20180207
  131. BISOPROLOL FUMARATE [Suspect]
     Active Substance: BISOPROLOL FUMARATE
     Dosage: 10 MG DAILY
     Route: 048
  132. BISOPROLOL FUMARATE [Suspect]
     Active Substance: BISOPROLOL FUMARATE
     Dosage: 5 MG DAILY
  133. BISOPROLOL FUMARATE [Suspect]
     Active Substance: BISOPROLOL FUMARATE
     Dosage: 5 MG DAILY
     Route: 048
     Dates: start: 20180207, end: 20180207
  134. BISOPROLOL FUMARATE [Suspect]
     Active Substance: BISOPROLOL FUMARATE
     Dosage: 5 MG DAILY
     Route: 048
     Dates: start: 20180207, end: 20180207
  135. BISOPROLOL FUMARATE [Suspect]
     Active Substance: BISOPROLOL FUMARATE
     Dosage: 10 MG DAILY
     Route: 048
  136. BISOPROLOL FUMARATE [Suspect]
     Active Substance: BISOPROLOL FUMARATE
  137. BISOPROLOL FUMARATE [Suspect]
     Active Substance: BISOPROLOL FUMARATE
     Dosage: 10 MG DAILY
  138. BISOPROLOL FUMARATE [Suspect]
     Active Substance: BISOPROLOL FUMARATE
     Dosage: 10 MG DAILY
  139. BISOPROLOL FUMARATE [Suspect]
     Active Substance: BISOPROLOL FUMARATE
     Dosage: 5 MG DAILY
     Route: 048
     Dates: start: 20180207, end: 20180207
  140. BISOPROLOL FUMARATE [Suspect]
     Active Substance: BISOPROLOL FUMARATE
     Dosage: 5 MG, QD; OFF LABEL USE
     Dates: start: 20180207, end: 20180207
  141. BISOPROLOL FUMARATE [Suspect]
     Active Substance: BISOPROLOL FUMARATE
     Dosage: 5 , 2 SEPARATE DOSES, 1/DAY
  142. BISOPROLOL FUMARATE [Suspect]
     Active Substance: BISOPROLOL FUMARATE
     Dosage: 10 MG, QD
     Route: 065
  143. BISOPROLOL FUMARATE [Suspect]
     Active Substance: BISOPROLOL FUMARATE
  144. LANSOPRAZOLE [Suspect]
     Active Substance: LANSOPRAZOLE
     Indication: Atrial fibrillation
     Dosage: 30 MG EVERY MORNING
     Route: 048
  145. LANSOPRAZOLE [Suspect]
     Active Substance: LANSOPRAZOLE
     Indication: Product used for unknown indication
     Dosage: 30 MG DAILY
  146. LANSOPRAZOLE [Suspect]
     Active Substance: LANSOPRAZOLE
     Dosage: 5 MG DAILY
     Dates: start: 20180207, end: 20180207
  147. LANSOPRAZOLE [Suspect]
     Active Substance: LANSOPRAZOLE
     Dosage: 10 MG DAILY
     Dates: start: 20180207, end: 20180207
  148. LANSOPRAZOLE [Suspect]
     Active Substance: LANSOPRAZOLE
     Dosage: 10  MG DAILY
     Dates: start: 20180207, end: 20180218
  149. LANSOPRAZOLE [Suspect]
     Active Substance: LANSOPRAZOLE
     Dosage: 10 MILLIGRAM, QD (10 MG (1 DAY)
     Dates: start: 20180207, end: 20180218
  150. LANSOPRAZOLE [Suspect]
     Active Substance: LANSOPRAZOLE
     Dosage: 10 MG, QD(10 MILLIGRAM, QD, (10 MG (1 DAY))
     Dates: start: 20180207, end: 20180218
  151. LANSOPRAZOLE [Suspect]
     Active Substance: LANSOPRAZOLE
     Dosage: 12 MICROGRAM, ONCE A DAY
  152. LANSOPRAZOLE [Suspect]
     Active Substance: LANSOPRAZOLE
     Dosage: 12 MICROGRAM, ONCE A DAY
  153. LANSOPRAZOLE [Suspect]
     Active Substance: LANSOPRAZOLE
     Dosage: 12 MICROGRAM, ONCE A DAY
  154. LANSOPRAZOLE [Suspect]
     Active Substance: LANSOPRAZOLE
     Dosage: 12 MICROGRAM, ONCE A DAY
  155. LEVOTHYROXINE SODIUM [Suspect]
     Active Substance: LEVOTHYROXINE SODIUM
     Indication: Product used for unknown indication
     Dosage: 1 DF - 50G, ONCE DAILY (QD)125 UG, QD (MORNING)
  156. LEVOTHYROXINE SODIUM [Suspect]
     Active Substance: LEVOTHYROXINE SODIUM
     Indication: Product used for unknown indication
     Dosage: 125 MICROGRAM, QD (MORNING)
  157. LEVOTHYROXINE SODIUM [Suspect]
     Active Substance: LEVOTHYROXINE SODIUM
     Dosage: 50 MG DAILY?FORM OF ADMIN.:- POWDER
  158. LEVOTHYROXINE SODIUM [Suspect]
     Active Substance: LEVOTHYROXINE SODIUM
     Dosage: 10 MG, QD (10 MILLIGRAM, QD; 5MG, QD)
  159. LEVOTHYROXINE SODIUM [Suspect]
     Active Substance: LEVOTHYROXINE SODIUM
     Dosage: 12 UG DAILY
  160. LEVOTHYROXINE SODIUM [Suspect]
     Active Substance: LEVOTHYROXINE SODIUM
     Dosage: 1 DF - 50G, ONCE DAILY (QD)
  161. LEVOTHYROXINE SODIUM [Suspect]
     Active Substance: LEVOTHYROXINE SODIUM
     Dosage: 1 DF, UNK
  162. LEVOTHYROXINE SODIUM [Suspect]
     Active Substance: LEVOTHYROXINE SODIUM
     Dosage: 50 MICROGRAM, ONCE A DAY (MORNING)
  163. LEVOTHYROXINE SODIUM [Suspect]
     Active Substance: LEVOTHYROXINE SODIUM
     Dosage: 12 MICROGRAM, QD
  164. LEVOTHYROXINE SODIUM [Suspect]
     Active Substance: LEVOTHYROXINE SODIUM
     Dosage: 50 G DAILY
  165. LEVOTHYROXINE SODIUM [Suspect]
     Active Substance: LEVOTHYROXINE SODIUM
     Dosage: 30 MG DAILY
  166. LEVOTHYROXINE SODIUM [Suspect]
     Active Substance: LEVOTHYROXINE SODIUM
     Dosage: 50  MG DAILY
  167. LEVOTHYROXINE SODIUM [Suspect]
     Active Substance: LEVOTHYROXINE SODIUM
     Dosage: UNK UNK, QD;
  168. LEVOTHYROXINE SODIUM [Suspect]
     Active Substance: LEVOTHYROXINE SODIUM
     Dosage: UNK UNK, QD;
  169. LEVOTHYROXINE SODIUM [Suspect]
     Active Substance: LEVOTHYROXINE SODIUM
     Dosage: UNK UNK, QD;
  170. LEVOTHYROXINE SODIUM [Suspect]
     Active Substance: LEVOTHYROXINE SODIUM
     Dosage: UNK UNK, QD;
  171. LEVOTHYROXINE SODIUM [Suspect]
     Active Substance: LEVOTHYROXINE SODIUM
     Dosage: 50 ?G, ONCE DAILY (QD) (MORNING)
  172. LEVOTHYROXINE SODIUM [Suspect]
     Active Substance: LEVOTHYROXINE SODIUM
     Dosage: 10 MG, QD (10 MILLIGRAM, QD; 5MG, QD)
     Route: 065
  173. LEVOTHYROXINE SODIUM [Suspect]
     Active Substance: LEVOTHYROXINE SODIUM
     Route: 065
  174. LEVOTHYROXINE SODIUM [Suspect]
     Active Substance: LEVOTHYROXINE SODIUM
     Dosage: 12 MCG QD, TABLET
     Route: 065
  175. LEVOTHYROXINE SODIUM [Suspect]
     Active Substance: LEVOTHYROXINE SODIUM
     Dosage: 1 DF - 50G, ONCE DAILY (QD)
  176. LEVOTHYROXINE SODIUM [Suspect]
     Active Substance: LEVOTHYROXINE SODIUM
  177. LEVOTHYROXINE SODIUM [Suspect]
     Active Substance: LEVOTHYROXINE SODIUM
  178. HYDROCHLOROTHIAZIDE [Suspect]
     Active Substance: HYDROCHLOROTHIAZIDE
     Indication: Cerebrovascular accident prophylaxis
     Route: 048
  179. HYDROCHLOROTHIAZIDE [Suspect]
     Active Substance: HYDROCHLOROTHIAZIDE
     Indication: Product used for unknown indication
     Dosage: 2 MG, QD (MORNING)
     Route: 048
  180. HYDROCHLOROTHIAZIDE [Suspect]
     Active Substance: HYDROCHLOROTHIAZIDE
     Dosage: 10 MILLIGRAM, QD; 10MG/ML
     Route: 048
  181. HYDROCHLOROTHIAZIDE [Suspect]
     Active Substance: HYDROCHLOROTHIAZIDE
     Route: 048
  182. HYDROCHLOROTHIAZIDE [Suspect]
     Active Substance: HYDROCHLOROTHIAZIDE
     Route: 048
  183. HYDROCHLOROTHIAZIDE [Suspect]
     Active Substance: HYDROCHLOROTHIAZIDE
     Route: 048
  184. HYDROCHLOROTHIAZIDE [Suspect]
     Active Substance: HYDROCHLOROTHIAZIDE
     Route: 048
  185. HYDROCHLOROTHIAZIDE [Suspect]
     Active Substance: HYDROCHLOROTHIAZIDE
     Route: 048
  186. HYDROCHLOROTHIAZIDE [Suspect]
     Active Substance: HYDROCHLOROTHIAZIDE
     Dosage: 2 MG, QD
     Route: 048
  187. HYDROCHLOROTHIAZIDE [Suspect]
     Active Substance: HYDROCHLOROTHIAZIDE
     Dosage: 1 DOSAGE FORM
     Route: 048
  188. HYDROCHLOROTHIAZIDE [Suspect]
     Active Substance: HYDROCHLOROTHIAZIDE
     Dosage: 1 DOSAGE FORM
     Route: 048
  189. HYDROCHLOROTHIAZIDE [Suspect]
     Active Substance: HYDROCHLOROTHIAZIDE
     Dosage: 2 MG, QD
     Route: 048
  190. HYDROCHLOROTHIAZIDE [Suspect]
     Active Substance: HYDROCHLOROTHIAZIDE
     Dosage: 2 MG, QD
     Route: 048
  191. HYDROCHLOROTHIAZIDE [Suspect]
     Active Substance: HYDROCHLOROTHIAZIDE
     Dosage: 1 DOSAGE FORM
     Route: 048
  192. HYDROCHLOROTHIAZIDE [Suspect]
     Active Substance: HYDROCHLOROTHIAZIDE
     Dosage: 2 MG, QD
     Route: 048
  193. HYDROCHLOROTHIAZIDE [Suspect]
     Active Substance: HYDROCHLOROTHIAZIDE
     Dosage: 1 DOSAGE FORM
     Route: 048
  194. HYDROCHLOROTHIAZIDE [Suspect]
     Active Substance: HYDROCHLOROTHIAZIDE
  195. CETIRIZINE HYDROCHLORIDE [Suspect]
     Active Substance: CETIRIZINE HYDROCHLORIDE
     Indication: Product used for unknown indication
     Route: 048
  196. CETIRIZINE HYDROCHLORIDE [Suspect]
     Active Substance: CETIRIZINE HYDROCHLORIDE
     Dosage: 10 MILLIGRAM, QD (IN MORNING)
     Route: 048
  197. CETIRIZINE HYDROCHLORIDE [Suspect]
     Active Substance: CETIRIZINE HYDROCHLORIDE
     Dosage: 10 MG DAILY
     Route: 048
  198. CETIRIZINE HYDROCHLORIDE [Suspect]
     Active Substance: CETIRIZINE HYDROCHLORIDE
     Dosage: 10 MG DAILY
     Route: 048
  199. CETIRIZINE HYDROCHLORIDE [Suspect]
     Active Substance: CETIRIZINE HYDROCHLORIDE
     Dosage: 10 MG DAILY
     Route: 048
  200. CETIRIZINE HYDROCHLORIDE [Suspect]
     Active Substance: CETIRIZINE HYDROCHLORIDE
     Dosage: 10 MG DAILY
     Route: 048
  201. CETIRIZINE HYDROCHLORIDE [Suspect]
     Active Substance: CETIRIZINE HYDROCHLORIDE
     Dosage: 10 MG DAILY
     Route: 048
  202. CETIRIZINE HYDROCHLORIDE [Suspect]
     Active Substance: CETIRIZINE HYDROCHLORIDE
     Dosage: 10 MG DAILY
     Route: 048
  203. CETIRIZINE HYDROCHLORIDE [Suspect]
     Active Substance: CETIRIZINE HYDROCHLORIDE
     Dosage: 10 MG DAILY
     Route: 048
  204. CETIRIZINE HYDROCHLORIDE [Suspect]
     Active Substance: CETIRIZINE HYDROCHLORIDE
     Dosage: 10 MG DAILY
     Route: 048
  205. CETIRIZINE HYDROCHLORIDE [Suspect]
     Active Substance: CETIRIZINE HYDROCHLORIDE
     Dosage: 10 MG DAILY, MORNING
  206. CETIRIZINE HYDROCHLORIDE [Suspect]
     Active Substance: CETIRIZINE HYDROCHLORIDE
     Dosage: MORNING
     Route: 065
  207. CETIRIZINE HYDROCHLORIDE [Suspect]
     Active Substance: CETIRIZINE HYDROCHLORIDE
     Dosage: 10 MILLIGRAM, QD (IN MORNING)
     Route: 048
  208. ZOCOR [Suspect]
     Active Substance: SIMVASTATIN
     Indication: Product used for unknown indication
  209. ZOCOR [Suspect]
     Active Substance: SIMVASTATIN
     Dosage: 40 MG AT NIGHT
  210. ZOCOR [Suspect]
     Active Substance: SIMVASTATIN
     Dosage: 40 MG AT NIGHT
  211. ZOCOR [Suspect]
     Active Substance: SIMVASTATIN
     Dosage: 40 MG AT NIGHT
  212. ZOCOR [Suspect]
     Active Substance: SIMVASTATIN
     Dosage: 40 MG AT NIGHT
  213. ZOCOR [Suspect]
     Active Substance: SIMVASTATIN
     Dosage: 40 MG AT NIGHT
  214. ZOCOR [Suspect]
     Active Substance: SIMVASTATIN
     Dosage: 40 MG AT NIGHT
  215. ZOCOR [Suspect]
     Active Substance: SIMVASTATIN
     Dosage: 40 MG AT NIGHT
  216. ZOCOR [Suspect]
     Active Substance: SIMVASTATIN
     Dosage: 40 MG AT NIGHT
  217. ZOCOR [Suspect]
     Active Substance: SIMVASTATIN
     Dosage: 40 MG AT NIGHT
  218. APIXABAN [Suspect]
     Active Substance: APIXABAN
     Indication: Atrial fibrillation
     Dosage: 5 MG, QD, OLU: OFF LABEL DOSING FREQUENCY
     Dates: start: 20180207, end: 20180207
  219. APIXABAN [Suspect]
     Active Substance: APIXABAN
     Indication: Cerebrovascular accident prophylaxis
     Dosage: 10 MG (1 DAY); OLU: OFF LABEL DOSING FREQUENCY
     Dates: start: 20180207, end: 20180207
  220. APIXABAN [Suspect]
     Active Substance: APIXABAN
     Dates: start: 20180207, end: 20180207
  221. APIXABAN [Suspect]
     Active Substance: APIXABAN
     Route: 042
     Dates: start: 20180207, end: 20180207
  222. APIXABAN [Suspect]
     Active Substance: APIXABAN
     Route: 042
     Dates: start: 20180207, end: 20180207
  223. APIXABAN [Suspect]
     Active Substance: APIXABAN
     Route: 042
     Dates: start: 20180207
  224. APIXABAN [Suspect]
     Active Substance: APIXABAN
     Dates: start: 20180207
  225. APIXABAN [Suspect]
     Active Substance: APIXABAN
     Route: 042
     Dates: start: 20180207
  226. APIXABAN [Suspect]
     Active Substance: APIXABAN
     Route: 042
     Dates: start: 20180207
  227. APIXABAN [Suspect]
     Active Substance: APIXABAN
     Dates: start: 20180207, end: 20180207
  228. APIXABAN [Suspect]
     Active Substance: APIXABAN
     Dates: start: 20180207, end: 20180207
  229. APIXABAN [Suspect]
     Active Substance: APIXABAN
     Dosage: 5 MG, QD,
     Dates: start: 20180207, end: 20180207
  230. APIXABAN [Suspect]
     Active Substance: APIXABAN
     Dosage: 10 MG QD
     Dates: start: 20180207, end: 20180207
  231. APIXABAN [Suspect]
     Active Substance: APIXABAN
     Dosage: 5 MG, QD,
     Dates: start: 20180207, end: 20180207
  232. APIXABAN [Suspect]
     Active Substance: APIXABAN
     Dosage: 10 MG QD
     Dates: start: 20180207, end: 20180207
  233. APIXABAN [Suspect]
     Active Substance: APIXABAN
     Dosage: 5 MG, QD,
     Dates: start: 20180207, end: 20180207
  234. APIXABAN [Suspect]
     Active Substance: APIXABAN
     Dosage: 10 MG QD
     Dates: start: 20180207, end: 20180207
  235. APIXABAN [Suspect]
     Active Substance: APIXABAN
     Dosage: 5 MG, QD,
     Dates: start: 20180207, end: 20180207
  236. APIXABAN [Suspect]
     Active Substance: APIXABAN
     Dosage: 10 MG QD
     Dates: start: 20180207, end: 20180207
  237. APIXABAN [Suspect]
     Active Substance: APIXABAN
     Dosage: 5 MG, 2 SEPARATE DOSES, 1/DAY
     Dates: start: 20180207, end: 20180207
  238. APIXABAN [Suspect]
     Active Substance: APIXABAN
     Dosage: 5 MG, QD
     Route: 065
     Dates: end: 20180207
  239. ISOSORBIDE DINITRATE [Suspect]
     Active Substance: ISOSORBIDE DINITRATE
     Indication: Product used for unknown indication
     Dosage: 50 MG DAILY
  240. ISOSORBIDE DINITRATE [Suspect]
     Active Substance: ISOSORBIDE DINITRATE
     Indication: Product used for unknown indication
     Dosage: 50 MG DAILY
  241. ISOSORBIDE DINITRATE [Suspect]
     Active Substance: ISOSORBIDE DINITRATE
     Dosage: 50 MG DAILY
  242. ISOSORBIDE DINITRATE [Suspect]
     Active Substance: ISOSORBIDE DINITRATE
  243. ISOSORBIDE DINITRATE [Suspect]
     Active Substance: ISOSORBIDE DINITRATE
     Dosage: 50 MG DAILY
  244. ISOSORBIDE DINITRATE [Suspect]
     Active Substance: ISOSORBIDE DINITRATE
     Dosage: 50 MILLIGRAM, ONCE A DAY, IN MORNING
     Route: 048
  245. ISOSORBIDE DINITRATE [Suspect]
     Active Substance: ISOSORBIDE DINITRATE
     Dosage: 50 MILLIGRAM, ONCE A DAY
     Route: 048
  246. ISOSORBIDE DINITRATE [Suspect]
     Active Substance: ISOSORBIDE DINITRATE
     Dosage: 50 MG DAILY
  247. ISOSORBIDE DINITRATE [Suspect]
     Active Substance: ISOSORBIDE DINITRATE
     Dosage: 50 MG DAILY
  248. ISOSORBIDE DINITRATE [Suspect]
     Active Substance: ISOSORBIDE DINITRATE
     Dosage: 50 MG DAILY
  249. ISOSORBIDE DINITRATE [Suspect]
     Active Substance: ISOSORBIDE DINITRATE
     Dosage: 50 MG DAILY
  250. ISOSORBIDE DINITRATE [Suspect]
     Active Substance: ISOSORBIDE DINITRATE
     Dosage: 50 MG DAILY
  251. ISOSORBIDE DINITRATE [Suspect]
     Active Substance: ISOSORBIDE DINITRATE
     Dosage: 50 MILLIGRAM, ONCE A DAY
     Route: 048
  252. NAPROXEN [Suspect]
     Active Substance: NAPROXEN
     Indication: Product used for unknown indication
  253. CANDESARTAN [Suspect]
     Active Substance: CANDESARTAN
     Dosage: 2 MG, QD MORNING
     Route: 065
  254. CANDESARTAN [Suspect]
     Active Substance: CANDESARTAN
     Indication: Product used for unknown indication
     Dosage: (MORNING)
     Route: 048
  255. CETIRIZINE [Suspect]
     Active Substance: CETIRIZINE HYDROCHLORIDE
     Indication: Product used for unknown indication
     Dosage: 1 DOSAGE FORM, ONCE A DAY (MORNING)
  256. ISOSORBIDE [Suspect]
     Active Substance: ISOSORBIDE
     Indication: Product used for unknown indication
     Dosage: 50 MG MORNING, ONCE DAILY (QD) MORNING
     Route: 048
  257. AMITRIPTYLINE HYDROCHLORIDE [Concomitant]
     Active Substance: AMITRIPTYLINE HYDROCHLORIDE
     Indication: Product used for unknown indication
     Dosage: 1-2 NIGHTLY
     Dates: start: 20221123
  258. BENDROFLUMETHIAZIDE [Concomitant]
     Active Substance: BENDROFLUMETHIAZIDE
     Indication: Product used for unknown indication
     Dosage: TAKE ONE EACH MORNING
     Dates: start: 20221123
  259. BISOPROLOL [Concomitant]
     Active Substance: BISOPROLOL\BISOPROLOL FUMARATE
     Indication: Product used for unknown indication
     Dosage: TAKE ONE DAILY
     Dates: start: 20230301
  260. BISOPROLOL [Concomitant]
     Active Substance: BISOPROLOL\BISOPROLOL FUMARATE
     Dosage: MORNING
     Dates: start: 20221205
  261. BISOPROLOL [Concomitant]
     Active Substance: BISOPROLOL\BISOPROLOL FUMARATE
     Route: 048
     Dates: start: 20180207
  262. BISOPROLOL [Concomitant]
     Active Substance: BISOPROLOL\BISOPROLOL FUMARATE
  263. ESTRIOL [Concomitant]
     Active Substance: ESTRIOL
     Indication: Product used for unknown indication
     Dosage: APPLY APPLICATOR FULL EVERY NIGHT FOR 2 WEEKS T...
     Dates: start: 20221123
  264. FOSFOMYCIN [Concomitant]
     Active Substance: FOSFOMYCIN
     Indication: Product used for unknown indication
     Dosage: TAKE ONE SACHET DISSOLVED IN A GLASS OF WATER O...
     Dates: start: 20230227, end: 20230228
  265. OMEPRAZOLE [Concomitant]
     Active Substance: DONEPEZIL HYDROCHLORIDE\OMEPRAZOLE\OMEPRAZOLE MAGNESIUM
     Indication: Product used for unknown indication
     Dosage: TAKE TWO DAILY
     Dates: start: 20221123
  266. SIMVASTATIN [Concomitant]
     Active Substance: SIMVASTATIN
     Indication: Product used for unknown indication
     Dosage: TAKE ONE AT NIGHT
     Dates: start: 20221123
  267. ASPIRIN [Concomitant]
     Active Substance: ASPIRIN
     Indication: Product used for unknown indication
     Dates: start: 20230126
  268. BUMETANIDE [Concomitant]
     Active Substance: BUMETANIDE
     Indication: Product used for unknown indication
     Dosage: EACH MORNING
     Route: 048
     Dates: start: 20220525, end: 20230217

REACTIONS (80)
  - Intentional product use issue [Unknown]
  - Abdominal pain upper [Not Recovered/Not Resolved]
  - Blood glucose increased [Unknown]
  - Ventricular tachycardia [Not Recovered/Not Resolved]
  - Headache [Not Recovered/Not Resolved]
  - Nausea [Recovered/Resolved]
  - Dizziness [Recovered/Resolved]
  - Disturbance in attention [Recovered/Resolved]
  - Fatigue [Unknown]
  - Vomiting [Recovered/Resolved]
  - Palmoplantar keratoderma [Not Recovered/Not Resolved]
  - Tinnitus [Not Recovered/Not Resolved]
  - Tension headache [Not Recovered/Not Resolved]
  - Migraine [Not Recovered/Not Resolved]
  - Peripheral swelling [Recovered/Resolved]
  - Myocardial infarction [Recovered/Resolved with Sequelae]
  - Pain of skin [Recovered/Resolved]
  - Arthralgia [Recovered/Resolved]
  - Cognitive disorder [Recovered/Resolved]
  - Blindness [Recovered/Resolved]
  - Immunisation [Recovered/Resolved]
  - Alopecia [Recovered/Resolved with Sequelae]
  - Memory impairment [Recovering/Resolving]
  - Sleep terror [Recovered/Resolved]
  - Pruritus genital [Recovered/Resolved]
  - Visual impairment [Not Recovered/Not Resolved]
  - Blindness [Not Recovered/Not Resolved]
  - Diplopia [Not Recovered/Not Resolved]
  - Blindness [Not Recovered/Not Resolved]
  - Vasculitis [Not Recovered/Not Resolved]
  - Carotid artery occlusion [Recovered/Resolved with Sequelae]
  - Transient ischaemic attack [Recovered/Resolved]
  - COVID-19 [Recovered/Resolved with Sequelae]
  - Adverse drug reaction [Not Recovered/Not Resolved]
  - Back pain [Unknown]
  - Anxiety [Not Recovered/Not Resolved]
  - Insomnia [Unknown]
  - Heart rate increased [Unknown]
  - Muscle twitching [Unknown]
  - Abdominal pain upper [Unknown]
  - Dehydration [Unknown]
  - Hyperhidrosis [Unknown]
  - Rash papular [Recovering/Resolving]
  - Amnesia [Not Recovered/Not Resolved]
  - Pyrexia [Unknown]
  - Intentional product misuse [Unknown]
  - Intentional product misuse [Unknown]
  - Off label use [Unknown]
  - Off label use [Recovered/Resolved with Sequelae]
  - Product use issue [Unknown]
  - Medication error [Unknown]
  - Incorrect product administration duration [Unknown]
  - Product use in unapproved indication [Unknown]
  - Subarachnoid haemorrhage [Recovered/Resolved with Sequelae]
  - Diarrhoea [Recovered/Resolved]
  - Malaise [Unknown]
  - Abdominal discomfort [Unknown]
  - Hallucination [Recovered/Resolved]
  - Angioedema [Recovered/Resolved]
  - Malaise [Unknown]
  - Pericarditis [Not Recovered/Not Resolved]
  - Cardiospasm [Not Recovered/Not Resolved]
  - Dyspnoea [Unknown]
  - Atrial tachycardia [Not Recovered/Not Resolved]
  - Fatigue [Recovered/Resolved]
  - Muscular weakness [Unknown]
  - Feeling abnormal [Unknown]
  - Lip swelling [Recovering/Resolving]
  - Pruritus [Recovering/Resolving]
  - Dry skin [Not Recovered/Not Resolved]
  - Chest pain [Unknown]
  - Palpitations [Unknown]
  - Tachycardia [Unknown]
  - Pain [Recovered/Resolved]
  - Anosmia [Recovered/Resolved]
  - Eye pruritus [Recovered/Resolved]
  - Facial pain [Recovered/Resolved]
  - Fatigue [Recovered/Resolved]
  - Abdominal discomfort [Recovered/Resolved]
  - Off label use [Recovered/Resolved with Sequelae]

NARRATIVE: CASE EVENT DATE: 20180207
